FAERS Safety Report 9961406 (Version 2)
Quarter: 2014Q1

REPORT INFORMATION
  Report Type: Spontaneous
  Country: JP (occurrence: JP)
  Receive Date: 20140305
  Receipt Date: 20140305
  Transmission Date: 20141002
  Serious: Yes (Other)
  Sender: FDA-Public Use
  Company Number: JP-ASTELLAS-2013JP007999

PATIENT
  Age: 56 Year
  Sex: Female

DRUGS (8)
  1. PROGRAF [Suspect]
     Indication: IMMUNOSUPPRESSANT DRUG THERAPY
     Route: 065
  2. FUNGUARD [Suspect]
     Indication: ASPERGILLUS INFECTION
     Route: 065
  3. CANCIDAS [Suspect]
     Indication: ANTIFUNGAL TREATMENT
     Dosage: 70 MG, UNKNOWN/D
     Route: 042
  4. CANCIDAS [Suspect]
     Indication: ASPERGILLUS INFECTION
     Dosage: 50 MG, UNKNOWN/D
     Route: 042
  5. ITRIZOLE [Concomitant]
     Indication: ANTIFUNGAL PROPHYLAXIS
     Route: 048
  6. BROAD SPECTRUM ANTIBIOTICS [Concomitant]
     Indication: ASPERGILLUS INFECTION
     Route: 065
  7. VFEND [Concomitant]
     Indication: ASPERGILLUS INFECTION
     Route: 065
  8. AMPHOTERICIN B [Concomitant]
     Indication: ASPERGILLUS INFECTION
     Route: 065

REACTIONS (3)
  - Drug ineffective [Unknown]
  - Aspergillus infection [Recovering/Resolving]
  - Hypokalaemia [Recovering/Resolving]
